FAERS Safety Report 6189824-0 (Version None)
Quarter: 2009Q2

REPORT INFORMATION
  Report Type: 
  Country: None (occurrence: None)
  Receive Date: 20090514
  Receipt Date: 20090505
  Transmission Date: 20091009
  Serious: Yes (Other)
  Sender: FDA-Public Use
  Company Number: US-BAYER-200841237NA

PATIENT
  Age: 68 Year
  Sex: Female

DRUGS (2)
  1. AVELOX [Suspect]
     Indication: CHRONIC SINUSITIS
     Dosage: TOTAL DAILY DOSE: 400 MG  UNIT DOSE: 400 MG
     Route: 048
     Dates: start: 20081209, end: 20081211
  2. MEDROL [Suspect]
     Indication: CHRONIC SINUSITIS
     Dates: start: 20081209

REACTIONS (8)
  - ADVERSE EVENT [None]
  - CONFUSIONAL STATE [None]
  - DIZZINESS [None]
  - FEELING ABNORMAL [None]
  - HYPERSENSITIVITY [None]
  - PARAESTHESIA [None]
  - SINUS HEADACHE [None]
  - SINUSITIS [None]
